FAERS Safety Report 4449297-2 (Version None)
Quarter: 2004Q3

REPORT INFORMATION
  Report Type: 
  Country: None (occurrence: None)
  Receive Date: 20040910
  Receipt Date: 20040907
  Transmission Date: 20050211
  Serious: Yes (Other)
  Sender: FDA-Public Use
  Company Number: KII-2001-0012760

PATIENT
  Sex: Female

DRUGS (1)
  1. OXYCONTIN TABLETS (OXYCOCODONE HYDROCHLORIDE) CR TABLET [Suspect]
     Dosage: SEE IMAGE

REACTIONS (4)
  - CEREBROVASCULAR ACCIDENT [None]
  - OVERDOSE [None]
  - RESPIRATORY DISORDER [None]
  - SELF-MEDICATION [None]
